FAERS Safety Report 19722583 (Version 1)
Quarter: 2021Q3

REPORT INFORMATION
  Report Type: Spontaneous
  Country: US (occurrence: US)
  Receive Date: 20210819
  Receipt Date: 20210819
  Transmission Date: 20211014
  Serious: Yes (Other)
  Sender: FDA-Public Use
  Company Number: US-FRESENIUS MEDICAL CARE RENAL THERAPIES GROUP-FMC-2107-001156

PATIENT
  Age: 66 Year
  Sex: Male
  Weight: 80.5 kg

DRUGS (1)
  1. DELFLEX [Suspect]
     Active Substance: CALCIUM CHLORIDE\DEXTROSE\MAGNESIUM CHLORIDE\SODIUM CHLORIDE\SODIUM LACTATE
     Indication: END STAGE RENAL DISEASE
     Dosage: CCPD THERAPY = 7 DAYS?A?WEEK, EXCHANGES = 5, FILL VOLUME = 2500 ML, DWELL TIME = 1.75 HOURS.
     Route: 033

REACTIONS (1)
  - Peritonitis bacterial [Recovering/Resolving]
